FAERS Safety Report 9696049 (Version 1)
Quarter: 2013Q4

REPORT INFORMATION
  Report Type: Spontaneous
  Country: IT (occurrence: None)
  Receive Date: 20131115
  Receipt Date: 20131115
  Transmission Date: 20140711
  Serious: No
  Sender: FDA-Public Use
  Company Number: 2013AP009588

PATIENT
  Age: 84 Year
  Sex: Female

DRUGS (9)
  1. GLICLAZIDE (GLICLAZIDE) [Suspect]
     Indication: TYPE 2 DIABETES MELLITUS
     Dosage: UNKNOWN;TAB;PO;QD
     Route: 048
     Dates: start: 20131015
  2. CLARITHROMYCIN (CLARITHROMYCIN) [Suspect]
     Dosage: UNKNOWN;PO;QD
     Route: 048
     Dates: start: 20131010, end: 20131015
  3. NEBIVOLOL (NEBIVOLOL) ? [Concomitant]
  4. LERCANIDIPINE (LERCANIDIPINE) ? [Concomitant]
  5. ENALAPRIL [Concomitant]
  6. GLYCERYL TRINITRATE (GLYCERYL TRINITRATE) [Concomitant]
  7. PARACETAMOL (PARACETAMOL)? [Concomitant]
  8. CARDIOASPIRIN (ACETYLSALICYLIC ACID) [Concomitant]
  9. AMOXICILLIN (AMOXICILLIN) [Concomitant]

REACTIONS (2)
  - Drug interaction [None]
  - Hypoglycaemia [None]
